FAERS Safety Report 5339214-5 (Version None)
Quarter: 2007Q2

REPORT INFORMATION
  Report Type: 
  Country: None (occurrence: None)
  Receive Date: 20070330
  Receipt Date: 20060908
  Transmission Date: 20071010
  Serious: Yes (Other)
  Sender: FDA-Public Use
  Company Number: 2006UW17751

PATIENT
  Sex: Female

DRUGS (2)
  1. ZESTRIL [Suspect]
     Dosage: 30 MG HS PO
     Route: 048
  2. RESTORIL [Suspect]
     Dosage: 30 MG HS

REACTIONS (4)
  - DIZZINESS [None]
  - DRUG DISPENSING ERROR [None]
  - NAUSEA [None]
  - VOMITING [None]
